FAERS Safety Report 16802052 (Version 5)
Quarter: 2022Q2

REPORT INFORMATION
  Report Type: Report from Study
  Country: JP (occurrence: JP)
  Receive Date: 20190912
  Receipt Date: 20220617
  Transmission Date: 20220721
  Serious: No
  Sender: FDA-Public Use
  Company Number: JP-SHIRE-JP201929372AA

PATIENT

DRUGS (17)
  1. VELAGLUCERASE ALFA [Suspect]
     Active Substance: VELAGLUCERASE ALFA
     Indication: Gaucher^s disease
     Dosage: 60 INTERNATIONAL UNIT/KILOGRAM, 1X/2WKS
     Route: 042
     Dates: start: 20140917
  2. VELAGLUCERASE ALFA [Suspect]
     Active Substance: VELAGLUCERASE ALFA
     Dosage: UNK
     Route: 042
     Dates: start: 201204, end: 20140905
  3. IMIGLUCERASE RECOMBINANT [Concomitant]
     Indication: Gaucher^s disease
     Dosage: UNK
     Route: 065
     Dates: start: 200204, end: 20120327
  4. DIPHTHERIA VACCINE TOXOID, PERTUSSIS VACCINE ACELLULAR, TETANUS VACCIN [Concomitant]
     Indication: Prophylaxis
     Dosage: 1 DOSAGE FORM
     Route: 058
     Dates: start: 20141113, end: 20141113
  5. DIPHTHERIA VACCINE TOXOID, PERTUSSIS VACCINE ACELLULAR, TETANUS VACCIN [Concomitant]
     Dosage: 1 DOSAGE FORM
     Dates: start: 20141210, end: 20141210
  6. JEBIK V [Concomitant]
     Indication: Prophylaxis
     Dosage: 1 DOSAGE FORM
     Route: 058
     Dates: start: 20141113, end: 20141113
  7. JEBIK V [Concomitant]
     Dosage: 1 DOSAGE FORM
     Route: 058
     Dates: start: 20141210, end: 20141210
  8. SOLYUGEN G [Concomitant]
     Indication: Gaucher^s disease
     Dosage: 1500 MILLILITER
     Route: 042
     Dates: start: 20150108, end: 20150108
  9. SOLYUGEN G [Concomitant]
     Dosage: 2000 MILLILITER
     Route: 042
     Dates: start: 20150109, end: 20150109
  10. SOLYUGEN G [Concomitant]
     Dosage: 1000 MILLILITER
     Route: 042
     Dates: start: 20150110, end: 20150110
  11. ALBUMIN HUMAN [Concomitant]
     Active Substance: ALBUMIN HUMAN
     Indication: Gaucher^s disease
     Dosage: 50 MILLILITER
     Route: 042
     Dates: start: 20150109, end: 20150109
  12. DEXTROSE\POTASSIUM CHLORIDE\SODIUM CHLORIDE\SODIUM LACTATE [Concomitant]
     Active Substance: DEXTROSE\POTASSIUM CHLORIDE\SODIUM CHLORIDE\SODIUM LACTATE
     Indication: Gaucher^s disease
     Dosage: 1000 MILLILITER
     Route: 042
     Dates: start: 20150111, end: 20150112
  13. DEXTROSE\POTASSIUM CHLORIDE\SODIUM CHLORIDE\SODIUM LACTATE [Concomitant]
     Active Substance: DEXTROSE\POTASSIUM CHLORIDE\SODIUM CHLORIDE\SODIUM LACTATE
     Dosage: 500 MILLILITER
     Route: 042
     Dates: start: 20150113, end: 20150113
  14. BIO-THREE [Concomitant]
     Active Substance: HERBALS
     Indication: Gaucher^s disease
     Dosage: 3 DOSAGE FORM, QD
     Route: 048
     Dates: start: 20191225, end: 20200415
  15. LOPEMIN [Concomitant]
     Indication: Gaucher^s disease
     Dosage: 1 DOSAGE FORM, PRN
     Route: 048
     Dates: start: 20191225, end: 20200415
  16. RAMOSETRON HYDROCHLORIDE [Concomitant]
     Active Substance: RAMOSETRON HYDROCHLORIDE
     Indication: Gaucher^s disease
     Dosage: 2.5 MICROGRAM, QD
     Route: 048
     Dates: start: 20200122, end: 20200415
  17. RAMOSETRON HYDROCHLORIDE [Concomitant]
     Active Substance: RAMOSETRON HYDROCHLORIDE
     Dosage: 5 MICROGRAM, QD
     Route: 048
     Dates: start: 20200206, end: 20200415

REACTIONS (4)
  - Hypoalbuminaemia [Not Recovered/Not Resolved]
  - Oedema mucosal [Not Recovered/Not Resolved]
  - Diarrhoea [Not Recovered/Not Resolved]
  - Muscle spasms [Recovered/Resolved]

NARRATIVE: CASE EVENT DATE: 20150108
